FAERS Safety Report 5857711-0 (Version None)
Quarter: 2008Q3

REPORT INFORMATION
  Report Type: 
  Country: None (occurrence: None)
  Receive Date: 20080822
  Receipt Date: 20080814
  Transmission Date: 20090109
  Serious: Yes (Other)
  Sender: FDA-Public Use
  Company Number: 2008AP002019

PATIENT
  Age: 23 Year
  Sex: Female

DRUGS (4)
  1. PAROXETINE HCL [Suspect]
     Indication: DEPRESSION
     Dosage: 20 MG;  40 MG;QD;  30 MG; QD
     Dates: end: 20040414
  2. PAROXETINE HCL [Suspect]
     Indication: DEPRESSION
     Dosage: 20 MG;  40 MG;QD;  30 MG; QD
     Dates: start: 20010205
  3. CITALOPRAM HYDROBROMIDE [Concomitant]
  4. HYPERICUM EXTRACT (HYPERICUM EXTRACT) [Concomitant]

REACTIONS (15)
  - ANGER [None]
  - ANXIETY [None]
  - CONVULSION [None]
  - DEPRESSION [None]
  - DISTURBANCE IN ATTENTION [None]
  - DRUG WITHDRAWAL SYNDROME [None]
  - FATIGUE [None]
  - HEADACHE [None]
  - MAJOR DEPRESSION [None]
  - MEMORY IMPAIRMENT [None]
  - MOOD SWINGS [None]
  - MULTIPLE INJURIES [None]
  - OBSESSIVE-COMPULSIVE DISORDER [None]
  - POOR QUALITY SLEEP [None]
  - SYNCOPE [None]
